FAERS Safety Report 23448293 (Version 3)
Quarter: 2024Q1

REPORT INFORMATION
  Report Type: Spontaneous
  Country: US (occurrence: US)
  Receive Date: 20240127
  Receipt Date: 20240305
  Transmission Date: 20240410
  Serious: Yes (Other)
  Sender: FDA-Public Use
  Company Number: US-002147023-NVSC2024US017986

PATIENT

DRUGS (2)
  1. PLUVICTO [Suspect]
     Active Substance: LUTETIUM LU-177 VIPIVOTIDE TETRAXETAN
     Indication: Prostate cancer
     Dosage: UNK (200 MQI)
     Route: 042
     Dates: start: 20221108, end: 20221108
  2. PLUVICTO [Suspect]
     Active Substance: LUTETIUM LU-177 VIPIVOTIDE TETRAXETAN
     Dosage: UNK (200 MQI)
     Route: 042
     Dates: start: 20240122, end: 20240122

REACTIONS (5)
  - Renal failure [Unknown]
  - Leukopenia [Unknown]
  - Haemoglobin decreased [Unknown]
  - Anaemia [Unknown]
  - General physical health deterioration [Unknown]
